FAERS Safety Report 8903885 (Version 9)
Quarter: 2014Q2

REPORT INFORMATION
  Report Type: Spontaneous
  Country: US (occurrence: US)
  Receive Date: 20121113
  Receipt Date: 20140509
  Transmission Date: 20141212
  Serious: No
  Sender: FDA-Public Use
  Company Number: US-009507513-1211USA003002

PATIENT
  Sex: Male
  Weight: 102.4 kg

DRUGS (1)
  1. PROPECIA [Suspect]
     Indication: ANDROGENETIC ALOPECIA
     Dosage: 1 MG, UNK
     Route: 048
     Dates: start: 1999, end: 201110

REACTIONS (18)
  - Feeling abnormal [Unknown]
  - Anxiety [Not Recovered/Not Resolved]
  - Emotional disorder [Not Recovered/Not Resolved]
  - Psychiatric symptom [Not Recovered/Not Resolved]
  - Cognitive disorder [Not Recovered/Not Resolved]
  - Pollakiuria [Unknown]
  - Nocturia [Unknown]
  - Micturition urgency [Unknown]
  - Depression [Not Recovered/Not Resolved]
  - Erectile dysfunction [Unknown]
  - Libido decreased [Unknown]
  - Sexual dysfunction [Not Recovered/Not Resolved]
  - Inguinal hernia [Unknown]
  - Inguinal hernia repair [Unknown]
  - Hyperhidrosis [Unknown]
  - Sleep disorder [Unknown]
  - Depressed mood [Unknown]
  - Fatigue [Unknown]
